FAERS Safety Report 10821648 (Version 2)
Quarter: 2015Q1

REPORT INFORMATION
  Report Type: Report from Study
  Country: US (occurrence: US)
  Receive Date: 20150218
  Receipt Date: 20150221
  Transmission Date: 20150721
  Serious: No
  Sender: FDA-Public Use
  Company Number: US-ABBVIE-14K-163-1304661-00

PATIENT
  Sex: Female

DRUGS (1)
  1. HUMIRA [Suspect]
     Active Substance: ADALIMUMAB
     Indication: CROHN^S DISEASE
     Route: 065

REACTIONS (9)
  - Injection site haemorrhage [Unknown]
  - Injection site pruritus [Unknown]
  - Stress [Unknown]
  - Fatigue [Unknown]
  - Depression [Not Recovered/Not Resolved]
  - Vomiting [Unknown]
  - Partner stress [Unknown]
  - Injection site pain [Not Recovered/Not Resolved]
  - Feeding disorder [Unknown]
